FAERS Safety Report 4977414-4 (Version None)
Quarter: 2006Q2

REPORT INFORMATION
  Report Type: 
  Country: None (occurrence: None)
  Receive Date: 20060413
  Receipt Date: 20060330
  Transmission Date: 20061013
  Serious: Yes (Hospitalization)
  Sender: FDA-Public Use
  Company Number: 2006-BP-03628RO

PATIENT
  Age: 60 Year
  Sex: Male

DRUGS (7)
  1. METHADONE HCL [Suspect]
     Indication: PAIN
     Dosage: 4MG/Q8H TO 12MG/Q8H OVER 3D
  2. HYDROMORPHONE HCL [Suspect]
     Indication: PAIN
     Dosage: SEE IMAGE,
  3. KETAMINE (KETAMINE) [Suspect]
     Indication: PAIN
     Dosage: BY BURST UP TO 500 MG/24 HOURS, SC
     Route: 058
  4. METHOTRIMEPRAZINE (LEVOMEPROMAZINE) [Concomitant]
  5. DEXAMETHASONE [Concomitant]
  6. LAXATIVES (LAXATIVES) [Concomitant]
  7. BACLOFEN [Concomitant]

REACTIONS (7)
  - ABDOMINAL PAIN UPPER [None]
  - CHRONIC OBSTRUCTIVE PULMONARY DISEASE [None]
  - CONFUSIONAL STATE [None]
  - DELIRIUM [None]
  - DRUG EFFECT DECREASED [None]
  - INADEQUATE ANALGESIA [None]
  - MYOCLONUS [None]
